FAERS Safety Report 9055613 (Version 2)
Quarter: 2013Q1

REPORT INFORMATION
  Report Type: Spontaneous
  Country: US (occurrence: US)
  Receive Date: 20130206
  Receipt Date: 20130221
  Transmission Date: 20140127
  Serious: No
  Sender: FDA-Public Use
  Company Number: US-009507513-1301USA013357

PATIENT
  Sex: Female

DRUGS (3)
  1. CLARITIN [Suspect]
     Indication: UPPER-AIRWAY COUGH SYNDROME
     Dosage: 10 MG, ONCE
     Route: 048
     Dates: start: 20130122
  2. CLARITIN [Suspect]
     Indication: OROPHARYNGEAL PAIN
  3. CLARITIN [Suspect]
     Indication: MEDICAL OBSERVATION

REACTIONS (1)
  - Drug ineffective [Unknown]
